FAERS Safety Report 15263965 (Version 2)
Quarter: 2018Q3

REPORT INFORMATION
  Report Type: Spontaneous
  Country: US (occurrence: US)
  Receive Date: 20180810
  Receipt Date: 20180828
  Transmission Date: 20181010
  Serious: Yes (Other)
  Sender: FDA-Public Use
  Company Number: US-SA-2018SA213378

PATIENT
  Age: 61 Year
  Sex: Female
  Weight: 65.7 kg

DRUGS (14)
  1. ALOXI [Concomitant]
     Active Substance: PALONOSETRON HYDROCHLORIDE
     Dosage: 0.25 MG
  2. CYTOXAN [Concomitant]
     Active Substance: CYCLOPHOSPHAMIDE
  3. ATIVAN [Concomitant]
     Active Substance: LORAZEPAM
     Dosage: 1 MG
     Route: 042
  4. COUMADIN [Concomitant]
     Active Substance: WARFARIN SODIUM
     Dosage: 1 MG, QD
     Route: 048
  5. DEXAMETHASONE. [Concomitant]
     Active Substance: DEXAMETHASONE
  6. TAXOTERE [Suspect]
     Active Substance: DOCETAXEL
     Indication: BREAST CANCER
     Dosage: 160 MG, UNK
     Route: 042
     Dates: start: 20081031, end: 20081031
  7. TAXOTERE [Suspect]
     Active Substance: DOCETAXEL
     Dosage: 160 MG, UNK
     Route: 042
     Dates: start: 20081204, end: 20081204
  8. NYSTATIN. [Concomitant]
     Active Substance: NYSTATIN
  9. GABAPENTIN. [Concomitant]
     Active Substance: GABAPENTIN
  10. TOPROL XL [Concomitant]
     Active Substance: METOPROLOL SUCCINATE
  11. CALTRATE WITH VITAMIN D [Concomitant]
     Active Substance: CALCIUM CARBONATE\CHOLECALCIFEROL
     Dosage: UNK UNK, BID
     Route: 048
  12. PHENERGAN [PROMETHAZINE] [Concomitant]
     Dosage: 25 MG
  13. ADRIAMYCIN [Concomitant]
     Active Substance: DOXORUBICIN HYDROCHLORIDE
  14. DECADRON [DEXAMETHASONE] [Concomitant]
     Dosage: 20 MG
     Route: 042

REACTIONS (1)
  - Alopecia [Not Recovered/Not Resolved]
